FAERS Safety Report 19053061 (Version 1)
Quarter: 2021Q1

REPORT INFORMATION
  Report Type: Spontaneous
  Country: NL (occurrence: NL)
  Receive Date: 20210325
  Receipt Date: 20210325
  Transmission Date: 20210420
  Serious: Yes (Hospitalization, Other)
  Sender: FDA-Public Use
  Company Number: NL-009507513-2103NLD005581

PATIENT
  Age: 53 Year
  Sex: Male
  Weight: 107.7 kg

DRUGS (1)
  1. DEXAMETHASONE. [Suspect]
     Active Substance: DEXAMETHASONE
     Indication: GLIOBLASTOMA
     Dosage: ELEVATED DOSE 8 MG
     Route: 048
     Dates: start: 202101

REACTIONS (7)
  - Intracranial tumour haemorrhage [Unknown]
  - Nausea [Recovered/Resolved]
  - Headache [Recovered/Resolved]
  - Vomiting [Recovered/Resolved]
  - Platelet count decreased [Unknown]
  - Malignant neoplasm progression [Unknown]
  - Peritumoural oedema [Unknown]

NARRATIVE: CASE EVENT DATE: 20210210
